FAERS Safety Report 20764515 (Version 8)
Quarter: 2022Q3

REPORT INFORMATION
  Report Type: Report from Study
  Country: JP (occurrence: None)
  Receive Date: 20220428
  Receipt Date: 20220823
  Transmission Date: 20221027
  Serious: Yes (Hospitalization)
  Sender: FDA-Public Use
  Company Number: JP-Eisai Medical Research-EC-2022-113726

PATIENT
  Age: 69 Year
  Sex: Male
  Weight: 67 kg

DRUGS (17)
  1. LENVATINIB [Suspect]
     Active Substance: LENVATINIB
     Indication: Hepatocellular carcinoma
     Dosage: STARTING DOSE AT 12 MG, FLUCTUATED DOSAGE
     Route: 048
     Dates: start: 20210623, end: 20220417
  2. LENVATINIB [Suspect]
     Active Substance: LENVATINIB
     Dosage: BODY WEIGHT (BW) MORE THAN OR EQUAL TO 60 KG OR MG FOR BW LESS THAN 60 KG
     Route: 048
     Dates: start: 20220419, end: 20220419
  3. LENVATINIB [Suspect]
     Active Substance: LENVATINIB
     Dosage: BODY WEIGHT (BW) MORE THAN OR EQUAL TO 60 KG OR MG FOR BW LESS THAN 60 KG
     Route: 048
     Dates: start: 20220506
  4. PEMBROLIZUMAB [Suspect]
     Active Substance: PEMBROLIZUMAB
     Indication: Hepatocellular carcinoma
     Route: 041
     Dates: start: 20210623, end: 20220323
  5. PEMBROLIZUMAB [Suspect]
     Active Substance: PEMBROLIZUMAB
     Route: 041
     Dates: start: 20220506
  6. EPIRUBICIN [Suspect]
     Active Substance: EPIRUBICIN
     Indication: Hepatocellular carcinoma
     Dosage: FREQUENCY UNKNOWN
     Dates: start: 20210707, end: 20210707
  7. ETHIODIZED OIL [Suspect]
     Active Substance: ETHIODIZED OIL
     Indication: Hepatocellular carcinoma
     Dosage: DOSE AND FREQUENCY UNKNOWN
     Dates: start: 20210707, end: 20210707
  8. UREA [Concomitant]
     Active Substance: UREA
     Dates: start: 20210901
  9. LOXOPROFEN [Concomitant]
     Active Substance: LOXOPROFEN
     Dates: start: 20220228, end: 20220419
  10. REBAMIPIDE [Concomitant]
     Active Substance: REBAMIPIDE
     Dates: start: 20220228, end: 20220419
  11. GUAIAZULENE [Concomitant]
     Active Substance: GUAIAZULENE
     Dates: start: 20220302, end: 20220506
  12. FIBLAST [TRAFERMIN] [Concomitant]
     Dates: start: 20220302, end: 20220419
  13. ACETAMINOPHEN [Concomitant]
     Active Substance: ACETAMINOPHEN
     Dates: start: 20220311, end: 20220506
  14. TRAMADOL [Concomitant]
     Active Substance: TRAMADOL
     Dates: start: 20220316, end: 20220429
  15. PROCHLORPERAZINE MALEATE [Concomitant]
     Active Substance: PROCHLORPERAZINE MALEATE
     Dates: start: 20220316, end: 20220429
  16. KEFLEX [Concomitant]
     Active Substance: CEPHALEXIN
     Dates: start: 20220406, end: 20220412
  17. BETAMETHASONE DIPROPIONATE [Concomitant]
     Active Substance: BETAMETHASONE DIPROPIONATE
     Dates: start: 20220413, end: 20220415

REACTIONS (2)
  - Rhabdomyolysis [Recovered/Resolved]
  - Cellulitis [Recovered/Resolved]

NARRATIVE: CASE EVENT DATE: 20220419
